FAERS Safety Report 10036498 (Version 1)
Quarter: 2014Q1

REPORT INFORMATION
  Report Type: Spontaneous
  Country: US (occurrence: US)
  Receive Date: 20140326
  Receipt Date: 20140326
  Transmission Date: 20141002
  Serious: No
  Sender: FDA-Public Use
  Company Number: US-US-EMD SERONO, INC.-7277013

PATIENT
  Sex: Male

DRUGS (6)
  1. REBIF [Suspect]
     Indication: PRODUCT USED FOR UNKNOWN INDICATION
  2. CENTRUM                            /00554501/ [Concomitant]
     Indication: PRODUCT USED FOR UNKNOWN INDICATION
  3. PROPRANOLOL [Concomitant]
     Indication: PRODUCT USED FOR UNKNOWN INDICATION
  4. ALKA-SELTZER                       /00002701/ [Concomitant]
     Indication: PRODUCT USED FOR UNKNOWN INDICATION
  5. CELEXA                             /00582602/ [Concomitant]
     Indication: PRODUCT USED FOR UNKNOWN INDICATION
  6. KLONOPIN [Concomitant]
     Indication: PRODUCT USED FOR UNKNOWN INDICATION

REACTIONS (2)
  - Nasopharyngitis [Not Recovered/Not Resolved]
  - Fall [Unknown]
